FAERS Safety Report 21724422 (Version 1)
Quarter: 2022Q4

REPORT INFORMATION
  Report Type: Spontaneous
  Country: None (occurrence: GB)
  Receive Date: 20221213
  Receipt Date: 20221213
  Transmission Date: 20230113
  Serious: Yes (Life-Threatening, Hospitalization)
  Sender: FDA-Public Use
  Company Number: GB-Jiangsu Hengrui Medicine Co., Ltd.-2135842

PATIENT
  Sex: Female

DRUGS (4)
  1. CYCLOPHOSPHAMIDE [Suspect]
     Active Substance: CYCLOPHOSPHAMIDE
     Indication: Follicular lymphoma
  2. OBINUTUZUMAB [Suspect]
     Active Substance: OBINUTUZUMAB
  3. VINCRISTINE [Suspect]
     Active Substance: VINCRISTINE
  4. PREDNISOLONE [Suspect]
     Active Substance: PREDNISOLONE

REACTIONS (1)
  - Neutropenic sepsis [Recovered/Resolved]
